FAERS Safety Report 15996805 (Version 1)
Quarter: 2019Q1

REPORT INFORMATION
  Report Type: Spontaneous
  Country: US (occurrence: US)
  Receive Date: 20190222
  Receipt Date: 20190222
  Transmission Date: 20190418
  Serious: Yes (Disabling)
  Sender: FDA-Public Use
  Company Number: None

PATIENT
  Age: 50 Year
  Sex: Female
  Weight: 60.21 kg

DRUGS (1)
  1. URSODIOL, COMMON BRAND ACTIGAL, URSO. [Suspect]
     Active Substance: URSODIOL
     Indication: PRIMARY BILIARY CHOLANGITIS
     Dosage: ?          QUANTITY:90 CAPSULE(S);?
     Route: 048

REACTIONS (10)
  - Blood glucose fluctuation [None]
  - Performance status decreased [None]
  - Scab [None]
  - Pruritus generalised [None]
  - Dysphagia [None]
  - Pain [None]
  - Rash [None]
  - Urticaria [None]
  - Lymphadenopathy [None]
  - Alopecia [None]

NARRATIVE: CASE EVENT DATE: 20190201
